FAERS Safety Report 6831965-6 (Version None)
Quarter: 2010Q2

REPORT INFORMATION
  Report Type: 
  Country: None (occurrence: None)
  Receive Date: 20100621
  Receipt Date: 20100407
  Transmission Date: 20101027
  Serious: Yes (Hospitalization)
  Sender: FDA-Public Use
  Company Number: OMX-2010-00010

PATIENT
  Age: 62 Year
  Sex: Male

DRUGS (2)
  1. EVICEL [Suspect]
     Indication: PROSTATECTOMY
     Dosage: DRIPPED ONTO TISSUE
     Dates: start: 20100120
  2. LOVENOX [Concomitant]

REACTIONS (3)
  - EMBOLIC STROKE [None]
  - POST PROCEDURAL COMPLICATION [None]
  - PULMONARY EMBOLISM [None]
